FAERS Safety Report 21315723 (Version 2)
Quarter: 2022Q3

REPORT INFORMATION
  Report Type: Spontaneous
  Country: JP (occurrence: JP)
  Receive Date: 20220909
  Receipt Date: 20220928
  Transmission Date: 20221026
  Serious: Yes (Other)
  Sender: FDA-Public Use
  Company Number: JP-MSD-2209JPN000411J

PATIENT
  Age: 76 Year
  Sex: Female

DRUGS (8)
  1. STROMECTOL [Suspect]
     Active Substance: IVERMECTIN
     Indication: Acarodermatitis
     Dosage: 12 MILLIGRAM, QD
     Route: 048
     Dates: start: 20220819, end: 20220819
  2. STROMECTOL [Suspect]
     Active Substance: IVERMECTIN
     Dosage: 12 MILLIGRAM, QD
     Route: 048
     Dates: start: 20220826, end: 20220826
  3. EPINASTINE HYDROCHLORIDE [Suspect]
     Active Substance: EPINASTINE HYDROCHLORIDE
     Indication: Acarodermatitis
     Dosage: 20 MILLIGRAM, QD
     Route: 048
     Dates: start: 20220819, end: 20220826
  4. EURAX [Concomitant]
     Active Substance: CROTAMITON
     Indication: Acarodermatitis
     Dosage: UNK
     Dates: start: 20220819, end: 20220829
  5. FEXOFENADINE HYDROCHLORIDE [Concomitant]
     Active Substance: FEXOFENADINE HYDROCHLORIDE
     Dosage: 60 MILLIGRAM, BID
     Route: 048
     Dates: start: 20220826
  6. PHENOL AND ZINC OXIDE [Concomitant]
     Indication: Acarodermatitis
     Dosage: UNK
     Dates: start: 20220829
  7. DERMACRIN A [Concomitant]
     Indication: Acarodermatitis
     Dosage: UNK
     Dates: start: 20220829
  8. PETROLATUM [Concomitant]
     Active Substance: PETROLATUM
     Indication: Acarodermatitis
     Dosage: UNK
     Dates: start: 20220829

REACTIONS (9)
  - Mazzotti reaction [Not Recovered/Not Resolved]
  - Cardiac failure [Unknown]
  - Malaise [Unknown]
  - Erythema [Recovering/Resolving]
  - Pruritus [Not Recovered/Not Resolved]
  - Rash papular [Unknown]
  - Face oedema [Unknown]
  - Oedema peripheral [Unknown]
  - Drug ineffective [Unknown]

NARRATIVE: CASE EVENT DATE: 20220101
